FAERS Safety Report 9868027 (Version 1)
Quarter: 2014Q1

REPORT INFORMATION
  Report Type: Report from Study
  Country: BR (occurrence: BR)
  Receive Date: 20140204
  Receipt Date: 20140204
  Transmission Date: 20141002
  Serious: Yes (Death, Hospitalization, Other)
  Sender: FDA-Public Use
  Company Number: PHHY2014BR012358

PATIENT
  Sex: Male
  Weight: 130 kg

DRUGS (4)
  1. DIOVAN [Suspect]
  2. OXALINA [Suspect]
     Indication: PNEUMONIA
     Dosage: UNK UKN, UNK
     Dates: start: 201305, end: 201306
  3. ANCORON [Suspect]
     Indication: ATRIAL FIBRILLATION
  4. MODURETIC [Suspect]
     Indication: HYPERTENSION

REACTIONS (2)
  - Septic shock [Fatal]
  - Fall [Unknown]
